FAERS Safety Report 14941886 (Version 1)
Quarter: 2018Q2

REPORT INFORMATION
  Report Type: Spontaneous
  Country: US (occurrence: US)
  Receive Date: 20180527
  Receipt Date: 20180527
  Transmission Date: 20180711
  Serious: No
  Sender: FDA-Public Use
  Company Number: PHEH2018US020365

PATIENT
  Age: 60 Year
  Sex: Female

DRUGS (1)
  1. TASIGNA [Suspect]
     Active Substance: NILOTINIB
     Indication: PRODUCT USED FOR UNKNOWN INDICATION
     Route: 065

REACTIONS (5)
  - Drug resistance [Unknown]
  - Diarrhoea [Unknown]
  - Nausea [Unknown]
  - Abdominal pain [Unknown]
  - Headache [Unknown]
